FAERS Safety Report 9250859 (Version 1)
Quarter: 2013Q1

REPORT INFORMATION
  Report Type: Spontaneous
  Country: US (occurrence: None)
  Receive Date: 20130305
  Receipt Date: 20130305
  Transmission Date: 20140127
  Serious: Yes (Other)
  Sender: FDA-Public Use
  Company Number: 163-21880-12071241

PATIENT
  Age: 85 Year
  Sex: Male

DRUGS (9)
  1. REVLIMID (LENALIDOMIDE) (CAPSULES) [Suspect]
     Indication: MYELODYSPLASTIC SYNDROME
     Dosage: 12 IN 12 D
     Route: 048
     Dates: start: 20120620
  2. ACYCLOVIR [Concomitant]
  3. AMLODIPINE BESYLATE [Concomitant]
  4. HYDROCHLOROTHIAZIDE [Concomitant]
  5. HYDROCORTISONE ACETATE [Concomitant]
  6. SIMVASTATIN [Concomitant]
  7. CYCLOSPORINE [Concomitant]
  8. CENTRUM SILVER [Concomitant]
  9. BENADRYL (DIPHENHYDRAMINE HYDROCHLORIDE) [Concomitant]

REACTIONS (6)
  - Pruritus [None]
  - Pruritus [None]
  - White blood cell count decreased [None]
  - Neutropenia [None]
  - Platelet count decreased [None]
  - Hypertension [None]
